FAERS Safety Report 7654836-4 (Version None)
Quarter: 2011Q3

REPORT INFORMATION
  Report Type: 
  Country: None (occurrence: None)
  Receive Date: 20110728
  Receipt Date: 20110712
  Transmission Date: 20111222
  Serious: Yes (Other)
  Sender: FDA-Public Use
  Company Number: 2011MA008731

PATIENT
  Age: 60 Year
  Sex: Male

DRUGS (4)
  1. GLYBURIDE [Concomitant]
  2. NITROCANTINE [Concomitant]
  3. ATORVASTATIN CALCIUM [Concomitant]
  4. LORAZEPAM [Suspect]
     Indication: PRODUCT USED FOR UNKNOWN INDICATION

REACTIONS (21)
  - SINUS TACHYCARDIA [None]
  - HYPOTONIA [None]
  - BLOOD PRESSURE DIASTOLIC DECREASED [None]
  - ELECTROCARDIOGRAM T WAVE INVERSION [None]
  - VENTRICULAR TACHYCARDIA [None]
  - EJECTION FRACTION DECREASED [None]
  - BLOOD PH DECREASED [None]
  - COMA [None]
  - LEFT VENTRICULAR HYPERTROPHY [None]
  - INCORRECT DOSE ADMINISTERED [None]
  - RESPIRATORY RATE INCREASED [None]
  - DRUG INEFFECTIVE [None]
  - RHONCHI [None]
  - PO2 DECREASED [None]
  - TOXICITY TO VARIOUS AGENTS [None]
  - CORONARY ARTERY STENOSIS [None]
  - INCREASED BRONCHIAL SECRETION [None]
  - EXTENSOR PLANTAR RESPONSE [None]
  - SNORING [None]
  - PCO2 INCREASED [None]
  - BLOOD GLUCOSE INCREASED [None]
